FAERS Safety Report 8492677-9 (Version None)
Quarter: 2012Q3

REPORT INFORMATION
  Report Type: 
  Country: None (occurrence: None)
  Receive Date: 20120706
  Receipt Date: 20120628
  Transmission Date: 20120928
  Serious: Yes (Hospitalization)
  Sender: FDA-Public Use
  Company Number: US-PFIZER INC-2012155004

PATIENT
  Sex: Male

DRUGS (3)
  1. TEMSIROLIMUS [Suspect]
     Indication: TONSIL CANCER
     Dosage: UNK
     Dates: start: 20120113
  2. TAXOL [Suspect]
     Indication: TONSIL CANCER
     Dosage: UNK
     Dates: start: 20120113
  3. CARBOPLATIN [Suspect]
     Indication: TONSIL CANCER
     Dosage: UNK
     Dates: start: 20120113

REACTIONS (2)
  - PNEUMONIA [None]
  - PYREXIA [None]
